FAERS Safety Report 4650380-7 (Version None)
Quarter: 2005Q2

REPORT INFORMATION
  Report Type: 
  Country: None (occurrence: None)
  Receive Date: 20050429
  Receipt Date: 20040218
  Transmission Date: 20051028
  Serious: Yes (Other)
  Sender: FDA-Public Use
  Company Number: 2004AP00043

PATIENT
  Age: 35 Year
  Sex: Female
  Weight: 54 kg

DRUGS (2)
  1. RHINOCORT [Suspect]
     Indication: SEASONAL ALLERGY
     Dosage: 64 UG DAILY IN
     Route: 055
     Dates: start: 20031101, end: 20031201
  2. VENTOLIN HFA [Concomitant]

REACTIONS (6)
  - GRIP STRENGTH DECREASED [None]
  - LIMB INJURY [None]
  - MOBILITY DECREASED [None]
  - PAIN IN EXTREMITY [None]
  - PHARMACEUTICAL PRODUCT COMPLAINT [None]
  - TENDON INJURY [None]
